FAERS Safety Report 9293889 (Version 1)
Quarter: 2013Q1

REPORT INFORMATION
  Report Type: Spontaneous
  Country: US (occurrence: None)
  Receive Date: 20121217
  Receipt Date: 20121217
  Transmission Date: 20140127
  Serious: Yes (Other)
  Sender: FDA-Public Use
  Company Number: 1000030226

PATIENT
  Age: 81 Year
  Sex: Male
  Weight: 52 kg

DRUGS (9)
  1. NAMENDA [Suspect]
     Indication: DEMENTIA
     Dosage: 5 MG (5 MG, 1 IN 1 D) , ORAL
     Dates: start: 20120427, end: 20120430
  2. MEGACE [Suspect]
     Indication: DECREASED APPETITE
     Dosage: 800 MG (400 MG, 1 IN 1 D), ORAL
     Dates: start: 20120427, end: 20120430
  3. FLOMAX [Concomitant]
  4. SPIRIVA (TIOTOPIUM BROMIDE) [Concomitant]
  5. ASAMANEX (MOMETASONE FUROATE) (MOMETASONE FUROATE) [Concomitant]
  6. NEXIUM (ESOMEPRAZOLE) (ESOMEPRAZOLE) [Concomitant]
  7. EXELON (RIVALVASTIGMINE) (POULTICE OR PATCH) (RIVASTATIGMINE) [Concomitant]
  8. MULTIVITAMINS (MULTIVITAMINS) (MULTIVITAMINS) [Concomitant]
  9. GLUCOSAMINE (GLUCOSAMINE) (GLUCASMIDE) [Concomitant]

REACTIONS (2)
  - Confusional state [None]
  - Balance disorder [None]
